FAERS Safety Report 26157832 (Version 1)
Quarter: 2025Q4

REPORT INFORMATION
  Report Type: Spontaneous
  Country: US (occurrence: None)
  Receive Date: 20251215
  Receipt Date: 20251215
  Transmission Date: 20260118
  Serious: Yes (Death)
  Sender: FDA-CTU
  Company Number: None

PATIENT
  Age: 76 Year
  Sex: Male
  Weight: 75 kg

DRUGS (1)
  1. TIGECYCLINE [Suspect]
     Active Substance: TIGECYCLINE
     Dosage: FREQUENCY : TWICE A DAY;
     Route: 042
     Dates: start: 20251107, end: 20251110

REACTIONS (7)
  - Disseminated intravascular coagulation [None]
  - Hypotension [None]
  - Septic shock [None]
  - Multiple organ dysfunction syndrome [None]
  - Acute hepatic failure [None]
  - Acute kidney injury [None]
  - Thrombocytopenia [None]
